FAERS Safety Report 23592274 (Version 2)
Quarter: 2024Q2

REPORT INFORMATION
  Report Type: Spontaneous
  Country: BG (occurrence: BG)
  Receive Date: 20240304
  Receipt Date: 20240516
  Transmission Date: 20240716
  Serious: Yes (Hospitalization, Other)
  Sender: FDA-Public Use
  Company Number: BG-ABBVIE-5662531

PATIENT
  Age: 55 Year
  Sex: Male
  Weight: 74 kg

DRUGS (1)
  1. RINVOQ [Suspect]
     Active Substance: UPADACITINIB
     Indication: Colitis ulcerative
     Route: 048
     Dates: start: 20230722, end: 20240301

REACTIONS (4)
  - Squamous cell carcinoma of skin [Recovered/Resolved with Sequelae]
  - Faecal calprotectin increased [Unknown]
  - Rosacea [Unknown]
  - Skin lesion [Unknown]
